FAERS Safety Report 20847844 (Version 1)
Quarter: 2022Q2

REPORT INFORMATION
  Report Type: Other
  Country: GB (occurrence: GB)
  Receive Date: 20220519
  Receipt Date: 20220519
  Transmission Date: 20220721
  Serious: Yes (Other)
  Sender: FDA-Public Use
  Company Number: GB-Diamond PV Services-GGEL20120700873

PATIENT

DRUGS (8)
  1. NEBIVOLOL [Suspect]
     Active Substance: NEBIVOLOL
     Indication: Hypertension
     Dosage: 5 MILLIGRAM
     Route: 065
     Dates: start: 2000
  2. NEBIVOLOL [Suspect]
     Active Substance: NEBIVOLOL
     Indication: Proteinuria
     Dosage: 10 MILLIGRAM
     Route: 065
     Dates: start: 2007
  3. BENDROFLUMETHIAZIDE [Suspect]
     Active Substance: BENDROFLUMETHIAZIDE
     Indication: Hypertension
     Route: 065
     Dates: start: 2000, end: 2003
  4. BENDROFLUMETHIAZIDE [Suspect]
     Active Substance: BENDROFLUMETHIAZIDE
     Indication: Proteinuria
  5. AMLODIPINE [Concomitant]
     Active Substance: AMLODIPINE BESYLATE
     Indication: Hypertension
     Route: 065
     Dates: start: 2000, end: 2007
  6. RAMIPRIL [Concomitant]
     Active Substance: RAMIPRIL
     Indication: Hypertension
     Route: 065
     Dates: start: 2000
  7. SIMVASTATIN [Concomitant]
     Active Substance: SIMVASTATIN
     Indication: Hypertension
     Route: 065
     Dates: start: 2000
  8. SIMVASTATIN [Concomitant]
     Active Substance: SIMVASTATIN
     Route: 065

REACTIONS (12)
  - Atrial fibrillation [Unknown]
  - Renal failure [Unknown]
  - Blood pressure increased [Unknown]
  - Gait disturbance [Unknown]
  - Weight loss poor [Unknown]
  - Heart rate increased [Recovered/Resolved]
  - Dry skin [Recovered/Resolved]
  - Hypersensitivity [Recovered/Resolved]
  - Dizziness postural [Unknown]
  - Intermittent claudication [Unknown]
  - Pruritus [Recovered/Resolved]
  - Psoriasis [Unknown]

NARRATIVE: CASE EVENT DATE: 20030101
